FAERS Safety Report 11913773 (Version 4)
Quarter: 2016Q3

REPORT INFORMATION
  Report Type: Report from Study
  Country: US (occurrence: US)
  Receive Date: 20160113
  Receipt Date: 20160727
  Transmission Date: 20161109
  Serious: Yes (Other)
  Sender: FDA-Public Use
  Company Number: US-SA-2015SA203479

PATIENT
  Age: 33 Year
  Sex: Female
  Weight: 133.8 kg

DRUGS (38)
  1. ACYCLOVIR. [Concomitant]
     Active Substance: ACYCLOVIR
     Indication: IMMUNE SYSTEM DISORDER
     Route: 048
     Dates: start: 20151130
  2. SODIUM CHLORIDE. [Concomitant]
     Active Substance: SODIUM CHLORIDE
     Dosage: OVER 2 HOURS
     Route: 042
     Dates: start: 20151130, end: 20151204
  3. TYLENOL [Concomitant]
     Active Substance: ACETAMINOPHEN
     Indication: PYREXIA
     Route: 048
     Dates: start: 20151130
  4. RANITIDINE. [Concomitant]
     Active Substance: RANITIDINE
     Route: 048
     Dates: start: 20151115, end: 20151215
  5. CHOLECALCIFEROL [Concomitant]
     Active Substance: CHOLECALCIFEROL
     Dosage: DOSE:5000 UNIT(S)
  6. BUPROPION. [Concomitant]
     Active Substance: BUPROPION
     Indication: DEPRESSION
  7. METHYLPHENIDATE. [Concomitant]
     Active Substance: METHYLPHENIDATE
     Indication: MULTIPLE SCLEROSIS
  8. METHYLPHENIDATE. [Concomitant]
     Active Substance: METHYLPHENIDATE
     Indication: FATIGUE
  9. BOTOX [Concomitant]
     Active Substance: ONABOTULINUMTOXINA
     Indication: MIGRAINE
  10. SUMATRIPTAN. [Concomitant]
     Active Substance: SUMATRIPTAN
     Indication: HEADACHE
  11. GABAPENTIN. [Concomitant]
     Active Substance: GABAPENTIN
     Indication: MYALGIA
  12. TOPIRAMATE. [Concomitant]
     Active Substance: TOPIRAMATE
     Indication: MIGRAINE
  13. TOPIRAMATE. [Concomitant]
     Active Substance: TOPIRAMATE
     Indication: MIGRAINE
  14. VITAMIN D3 [Concomitant]
     Active Substance: CHOLECALCIFEROL
  15. ZANTAC [Concomitant]
     Active Substance: RANITIDINE HYDROCHLORIDE
     Indication: PREMEDICATION
     Dates: start: 20151115
  16. SUMATRIPTAN. [Concomitant]
     Active Substance: SUMATRIPTAN
     Indication: MIGRAINE
     Dates: start: 20151130
  17. SUMATRIPTAN. [Concomitant]
     Active Substance: SUMATRIPTAN
     Indication: MIGRAINE
  18. TYLENOL [Concomitant]
     Active Substance: ACETAMINOPHEN
     Indication: MALAISE
     Route: 048
     Dates: start: 20151130
  19. GABAPENTIN. [Concomitant]
     Active Substance: GABAPENTIN
     Indication: MULTIPLE SCLEROSIS
  20. TOPIRAMATE. [Concomitant]
     Active Substance: TOPIRAMATE
     Indication: MULTIPLE SCLEROSIS
  21. OMEPRAZOLE. [Concomitant]
     Active Substance: OMEPRAZOLE
     Indication: GASTROOESOPHAGEAL REFLUX DISEASE
  22. TOLTERODINE [Concomitant]
     Active Substance: TOLTERODINE
     Indication: MULTIPLE SCLEROSIS
  23. ESCITALOPRAM [Concomitant]
     Active Substance: ESCITALOPRAM OXALATE
     Indication: DEPRESSION
  24. TYLENOL [Concomitant]
     Active Substance: ACETAMINOPHEN
     Indication: CHILLS
     Route: 048
     Dates: start: 20151130
  25. DIPHENHYDRAMINE. [Concomitant]
     Active Substance: DIPHENHYDRAMINE
     Indication: PRURITUS
     Route: 048
     Dates: start: 20151130
  26. ZYRTEC [Concomitant]
     Active Substance: CETIRIZINE HYDROCHLORIDE
     Route: 048
     Dates: start: 20151130, end: 20151215
  27. SUMATRIPTAN. [Concomitant]
     Active Substance: SUMATRIPTAN
     Indication: MIGRAINE
  28. WARFARIN [Concomitant]
     Active Substance: WARFARIN
     Indication: THROMBOSIS
     Dosage: AT 2PM
  29. LEMTRADA [Suspect]
     Active Substance: ALEMTUZUMAB
     Indication: MULTIPLE SCLEROSIS
     Route: 041
     Dates: start: 20151130, end: 20151204
  30. SOLU-MEDROL [Concomitant]
     Active Substance: METHYLPREDNISOLONE SODIUM SUCCINATE
     Indication: PREMEDICATION
     Route: 042
     Dates: start: 20151130, end: 20151204
  31. ACYCLOVIR. [Concomitant]
     Active Substance: ACYCLOVIR
     Indication: PREMEDICATION
     Route: 048
     Dates: start: 20151130
  32. TYLENOL [Concomitant]
     Active Substance: ACETAMINOPHEN
     Indication: HEADACHE
     Route: 048
     Dates: start: 20151130
  33. TOPIRAMATE. [Concomitant]
     Active Substance: TOPIRAMATE
     Indication: MULTIPLE SCLEROSIS
  34. ARIPIPRAZOLE. [Concomitant]
     Active Substance: ARIPIPRAZOLE
  35. WARFARIN [Concomitant]
     Active Substance: WARFARIN
     Indication: THROMBOSIS
  36. ACYCLOVIR. [Concomitant]
     Active Substance: ACYCLOVIR
     Indication: MULTIPLE SCLEROSIS
     Route: 048
     Dates: start: 20151130
  37. DIPHENHYDRAMINE. [Concomitant]
     Active Substance: DIPHENHYDRAMINE
     Indication: PRURITUS
     Route: 048
     Dates: start: 20151130, end: 20151204
  38. TOLTERODINE [Concomitant]
     Active Substance: TOLTERODINE
     Indication: BLADDER DISORDER

REACTIONS (21)
  - Peripheral swelling [Unknown]
  - Headache [Recovered/Resolved]
  - Feeling cold [Unknown]
  - Eye pruritus [Recovered/Resolved]
  - Feeling abnormal [Unknown]
  - Rash pruritic [Not Recovered/Not Resolved]
  - Rash [Unknown]
  - Headache [Unknown]
  - Blister [Recovered/Resolved]
  - Vomiting [Unknown]
  - Chills [Unknown]
  - Dyspnoea [Unknown]
  - Pruritus generalised [Recovered/Resolved]
  - Acne [Unknown]
  - Sunburn [Recovered/Resolved]
  - Nausea [Not Recovered/Not Resolved]
  - Pyrexia [Recovered/Resolved]
  - Rash macular [Unknown]
  - Urticaria [Recovered/Resolved]
  - Influenza [Unknown]
  - Initial insomnia [Unknown]

NARRATIVE: CASE EVENT DATE: 2015
